FAERS Safety Report 7028754-9 (Version None)
Quarter: 2010Q4

REPORT INFORMATION
  Report Type: 
  Country: None (occurrence: None)
  Receive Date: 20101005
  Receipt Date: 20091204
  Transmission Date: 20110411
  Serious: Yes (Other)
  Sender: FDA-Public Use
  Company Number: US-SANOFI-AVENTIS-200916057GDDC

PATIENT
  Age: 74 Year
  Sex: Male
  Weight: 59.8 kg

DRUGS (12)
  1. DOCETAXEL [Suspect]
     Dosage: DOSE UNIT: 122.25 MG
     Route: 042
     Dates: start: 20071204, end: 20080627
  2. ELIGARD [Suspect]
     Dosage: DOSE UNIT: 22.5 MG
     Route: 058
     Dates: start: 20071204, end: 20090302
  3. CASODEX [Suspect]
     Dosage: DOSE UNIT: 50 MG
     Route: 048
     Dates: start: 20071204, end: 20080107
  4. IRON [Concomitant]
     Dosage: DOSE AS USED: UNK
  5. ASPIRIN [Concomitant]
     Dosage: DOSE AS USED: UNK
  6. METFORMIN HCL [Concomitant]
     Dosage: DOSE AS USED: UNK
  7. OMEPRAZOLE [Concomitant]
     Dosage: DOSE AS USED: UNK
  8. ENALAPRIL MALEATE [Concomitant]
     Dosage: DOSE AS USED: UNK
  9. UNKNOWDRUG [Concomitant]
     Dosage: DOSE AS USED: UNK
  10. GLIPIZIDE [Concomitant]
     Dosage: DOSE AS USED: UNK
  11. EPOGEN [Concomitant]
     Dosage: DOSE:1000 UNIT(S)
  12. VYTORIN [Concomitant]

REACTIONS (1)
  - OESOPHAGEAL ADENOCARCINOMA [None]
